FAERS Safety Report 6112694-3 (Version None)
Quarter: 2009Q1

REPORT INFORMATION
  Report Type: 
  Country: None (occurrence: None)
  Receive Date: 20090312
  Receipt Date: 20090304
  Transmission Date: 20090719
  Serious: Yes (Hospitalization)
  Sender: FDA-Public Use
  Company Number: AU-PFIZER INC-2008153102

PATIENT

DRUGS (9)
  1. BLINDED *PLACEBO [Suspect]
     Indication: COLORECTAL CANCER
     Dosage: 25 MG, EVERY DAY
     Route: 048
     Dates: start: 20080811
  2. BLINDED SUNITINIB MALATE [Suspect]
     Indication: COLORECTAL CANCER
     Dosage: 25 MG, EVERY DAY
     Route: 048
     Dates: start: 20080811
  3. IRINOTECAN HCL [Suspect]
     Indication: COLORECTAL CANCER
     Dosage: 350 MG, EVERY 2 WEEKS
     Route: 042
     Dates: start: 20080811, end: 20081201
  4. FLUOROURACIL [Suspect]
     Indication: COLORECTAL CANCER
     Dosage: 750 MG, LOADING DOSE
     Route: 042
     Dates: start: 20080811, end: 20081203
  5. FLUOROURACIL [Suspect]
     Dosage: 4700 MG, INFUSION EVERY 2 WKS
     Dates: start: 20080811, end: 20081203
  6. CALCIUM FOLINATE [Suspect]
     Indication: COLORECTAL CANCER
     Dosage: 390 MG, EVERY 2 WKS
     Route: 042
     Dates: start: 20080811, end: 20081201
  7. ATROPINE [Concomitant]
     Indication: PROPHYLAXIS
     Dosage: 0.6 MG, UNK
     Dates: start: 20080811
  8. ONDANSETRON [Concomitant]
     Indication: PROPHYLAXIS OF NAUSEA AND VOMITING
     Dosage: 8 MG, UNK
     Dates: start: 20080811
  9. DEXAMETHASONE [Concomitant]
     Indication: PROPHYLAXIS OF NAUSEA AND VOMITING
     Dosage: 8 MG, UNK
     Dates: start: 20080811

REACTIONS (1)
  - ANAL ABSCESS [None]
